FAERS Safety Report 5813160-2 (Version None)
Quarter: 2008Q3

REPORT INFORMATION
  Report Type: 
  Country: None (occurrence: None)
  Receive Date: 20080717
  Receipt Date: 20080307
  Transmission Date: 20090109
  Serious: No
  Sender: FDA-Public Use
  Company Number: A0714046A

PATIENT
  Age: 4 Year
  Sex: Female

DRUGS (1)
  1. NICORETTE (MINT) [Suspect]
     Indication: ILL-DEFINED DISORDER
     Dates: start: 20080306, end: 20080306

REACTIONS (2)
  - ACCIDENTAL EXPOSURE [None]
  - VOMITING [None]
